FAERS Safety Report 15984687 (Version 1)
Quarter: 2019Q1

REPORT INFORMATION
  Report Type: Spontaneous
  Country: US (occurrence: US)
  Receive Date: 20190219
  Receipt Date: 20190219
  Transmission Date: 20190418
  Serious: Yes (Hospitalization)
  Sender: FDA-Public Use
  Company Number: None

PATIENT
  Age: 7 Year
  Sex: Male
  Weight: 24.75 kg

DRUGS (3)
  1. LEXAPRO [Suspect]
     Active Substance: ESCITALOPRAM OXALATE
     Indication: DISRUPTIVE MOOD DYSREGULATION DISORDER
     Dosage: ?          QUANTITY:1 TABLET(S);?
     Route: 048
  2. LEXAPRO [Suspect]
     Active Substance: ESCITALOPRAM OXALATE
     Indication: OPPOSITIONAL DEFIANT DISORDER
     Dosage: ?          QUANTITY:1 TABLET(S);?
     Route: 048
  3. CONCERTA [Suspect]
     Active Substance: METHYLPHENIDATE HYDROCHLORIDE
     Indication: ATTENTION DEFICIT/HYPERACTIVITY DISORDER
     Dosage: ?          QUANTITY:1 CAPSULE(S);?
     Route: 048
     Dates: start: 20190130, end: 20190131

REACTIONS (4)
  - Accident [None]
  - Trismus [None]
  - Personality change [None]
  - Tibia fracture [None]

NARRATIVE: CASE EVENT DATE: 20190130
